FAERS Safety Report 14771511 (Version 1)
Quarter: 2018Q2

REPORT INFORMATION
  Report Type: Spontaneous
  Country: US (occurrence: US)
  Receive Date: 20180417
  Receipt Date: 20180417
  Transmission Date: 20180711
  Serious: No
  Sender: FDA-Public Use
  Company Number: US-ALLERGAN-1731636US

PATIENT
  Age: 84 Year
  Sex: Male
  Weight: 63.49 kg

DRUGS (2)
  1. TIMOLOL MALEATE. [Concomitant]
     Active Substance: TIMOLOL MALEATE
     Indication: GLAUCOMA
     Route: 047
  2. LUMIGAN [Suspect]
     Active Substance: BIMATOPROST
     Indication: GLAUCOMA
     Dosage: 2 GTT, QHS
     Route: 047
     Dates: start: 201706

REACTIONS (6)
  - Erythema [Not Recovered/Not Resolved]
  - Product dropper issue [Unknown]
  - Product storage error [Unknown]
  - Drug dose omission [Unknown]
  - Skin irritation [Not Recovered/Not Resolved]
  - Conjunctivitis [Not Recovered/Not Resolved]

NARRATIVE: CASE EVENT DATE: 201706
